FAERS Safety Report 9016655 (Version 1)
Quarter: 2013Q1

REPORT INFORMATION
  Report Type: Spontaneous
  Country: IT (occurrence: IT)
  Receive Date: 20130117
  Receipt Date: 20130117
  Transmission Date: 20140127
  Serious: Yes (Other)
  Sender: FDA-Public Use
  Company Number: IT-BRISTOL-MYERS SQUIBB COMPANY-17284464

PATIENT
  Age: 83 Year
  Sex: Male

DRUGS (9)
  1. COUMADIN TABS 5 MG [Suspect]
     Indication: ATRIAL FIBRILLATION
     Dosage: LAST DOSE:14-NOV-2012
     Route: 048
     Dates: start: 20121001
  2. LANSOPRAZOLE [Concomitant]
  3. FINASTERIDE [Concomitant]
  4. AMIODARONE HCL [Concomitant]
  5. PAROXETINE HCL [Concomitant]
  6. CRESTOR [Concomitant]
  7. CARDIOASPIRIN [Concomitant]
     Dosage: TABS
  8. LIBRADIN [Concomitant]
  9. LASIX [Concomitant]

REACTIONS (6)
  - Melaena [Not Recovered/Not Resolved]
  - Dyspnoea [Not Recovered/Not Resolved]
  - Dizziness [Not Recovered/Not Resolved]
  - Nausea [Not Recovered/Not Resolved]
  - Pyrexia [Not Recovered/Not Resolved]
  - International normalised ratio increased [Unknown]
